FAERS Safety Report 7891271-8 (Version None)
Quarter: 2011Q4

REPORT INFORMATION
  Report Type: 
  Country: None (occurrence: None)
  Receive Date: 20111103
  Receipt Date: 20110801
  Transmission Date: 20120403
  Serious: No
  Sender: FDA-Public Use
  Company Number: US-AMGEN-USASP2011038954

PATIENT
  Age: 49 Year
  Sex: Male

DRUGS (2)
  1. REMICADE [Concomitant]
     Dosage: UNK
     Dates: start: 20020101, end: 20110501
  2. ENBREL [Suspect]
     Indication: PSORIASIS
     Dosage: 50 MG, QWK
     Dates: start: 19990101

REACTIONS (6)
  - DRUG ERUPTION [None]
  - INJECTION SITE SWELLING [None]
  - INJECTION SITE REACTION [None]
  - INJECTION SITE ERYTHEMA [None]
  - INJECTION SITE WARMTH [None]
  - RASH [None]
